FAERS Safety Report 25255406 (Version 1)
Quarter: 2025Q2

REPORT INFORMATION
  Report Type: Spontaneous
  Country: TW (occurrence: TW)
  Receive Date: 20250430
  Receipt Date: 20250430
  Transmission Date: 20250717
  Serious: Yes (Hospitalization)
  Sender: MYLAN
  Company Number: TW-MYLANLABS-2025M1036170

PATIENT
  Age: 84 Year
  Sex: Female
  Weight: 43.9 kg

DRUGS (44)
  1. CELEBREX [Suspect]
     Active Substance: CELECOXIB
     Indication: Pain in extremity
     Dates: start: 20250311, end: 20250318
  2. CELEBREX [Suspect]
     Active Substance: CELECOXIB
     Indication: Arthralgia
     Route: 048
     Dates: start: 20250311, end: 20250318
  3. CELEBREX [Suspect]
     Active Substance: CELECOXIB
     Route: 048
     Dates: start: 20250311, end: 20250318
  4. CELEBREX [Suspect]
     Active Substance: CELECOXIB
     Dates: start: 20250311, end: 20250318
  5. DOXAZOSIN MESYLATE [Concomitant]
     Active Substance: DOXAZOSIN MESYLATE
     Indication: Hypertension
     Dosage: 4 MILLIGRAM, BID
     Dates: start: 20250311, end: 20250325
  6. DOXAZOSIN MESYLATE [Concomitant]
     Active Substance: DOXAZOSIN MESYLATE
     Dosage: 4 MILLIGRAM, BID
     Route: 048
     Dates: start: 20250311, end: 20250325
  7. DOXAZOSIN MESYLATE [Concomitant]
     Active Substance: DOXAZOSIN MESYLATE
     Dosage: 4 MILLIGRAM, BID
     Route: 048
     Dates: start: 20250311, end: 20250325
  8. DOXAZOSIN MESYLATE [Concomitant]
     Active Substance: DOXAZOSIN MESYLATE
     Dosage: 4 MILLIGRAM, BID
     Dates: start: 20250311, end: 20250325
  9. FEBUXOSTAT [Concomitant]
     Active Substance: FEBUXOSTAT
     Indication: Chronic kidney disease
     Dosage: 80 MILLIGRAM, QD
  10. FEBUXOSTAT [Concomitant]
     Active Substance: FEBUXOSTAT
     Dosage: 80 MILLIGRAM, QD
     Route: 048
  11. FEBUXOSTAT [Concomitant]
     Active Substance: FEBUXOSTAT
     Dosage: 80 MILLIGRAM, QD
     Route: 048
  12. FEBUXOSTAT [Concomitant]
     Active Substance: FEBUXOSTAT
     Dosage: 80 MILLIGRAM, QD
  13. NORVASC [Concomitant]
     Active Substance: AMLODIPINE BESYLATE
     Indication: Hypertension
     Dosage: 5 MILLIGRAM, BID
  14. NORVASC [Concomitant]
     Active Substance: AMLODIPINE BESYLATE
     Dosage: 5 MILLIGRAM, BID
     Route: 048
  15. NORVASC [Concomitant]
     Active Substance: AMLODIPINE BESYLATE
     Dosage: 5 MILLIGRAM, BID
     Route: 048
  16. NORVASC [Concomitant]
     Active Substance: AMLODIPINE BESYLATE
     Dosage: 5 MILLIGRAM, BID
  17. LINAGLIPTIN [Concomitant]
     Active Substance: LINAGLIPTIN
     Indication: Type 2 diabetes mellitus
     Dosage: 5 MILLIGRAM, QD
  18. LINAGLIPTIN [Concomitant]
     Active Substance: LINAGLIPTIN
     Dosage: 5 MILLIGRAM, QD
     Route: 048
  19. LINAGLIPTIN [Concomitant]
     Active Substance: LINAGLIPTIN
     Dosage: 5 MILLIGRAM, QD
     Route: 048
  20. LINAGLIPTIN [Concomitant]
     Active Substance: LINAGLIPTIN
     Dosage: 5 MILLIGRAM, QD
  21. Forflow [Concomitant]
     Indication: Type 2 diabetes mellitus
  22. Forflow [Concomitant]
     Indication: Chronic kidney disease
     Route: 048
  23. Forflow [Concomitant]
     Route: 048
  24. Forflow [Concomitant]
  25. LIVALO [Concomitant]
     Active Substance: PITAVASTATIN CALCIUM
     Indication: Dyslipidaemia
     Dosage: 2 MILLIGRAM, QD
  26. LIVALO [Concomitant]
     Active Substance: PITAVASTATIN CALCIUM
     Dosage: 2 MILLIGRAM, QD
     Route: 048
  27. LIVALO [Concomitant]
     Active Substance: PITAVASTATIN CALCIUM
     Dosage: 2 MILLIGRAM, QD
     Route: 048
  28. LIVALO [Concomitant]
     Active Substance: PITAVASTATIN CALCIUM
     Dosage: 2 MILLIGRAM, QD
  29. ALDACTONE [Concomitant]
     Active Substance: SPIRONOLACTONE
     Indication: Chronic kidney disease
  30. ALDACTONE [Concomitant]
     Active Substance: SPIRONOLACTONE
     Route: 048
  31. ALDACTONE [Concomitant]
     Active Substance: SPIRONOLACTONE
     Route: 048
  32. ALDACTONE [Concomitant]
     Active Substance: SPIRONOLACTONE
  33. TRICHLORMETHIAZIDE [Concomitant]
     Active Substance: TRICHLORMETHIAZIDE
     Indication: Chronic kidney disease
  34. TRICHLORMETHIAZIDE [Concomitant]
     Active Substance: TRICHLORMETHIAZIDE
     Route: 048
  35. TRICHLORMETHIAZIDE [Concomitant]
     Active Substance: TRICHLORMETHIAZIDE
     Route: 048
  36. TRICHLORMETHIAZIDE [Concomitant]
     Active Substance: TRICHLORMETHIAZIDE
  37. RIVOTRIL [Concomitant]
     Active Substance: CLONAZEPAM
     Indication: Insomnia
  38. RIVOTRIL [Concomitant]
     Active Substance: CLONAZEPAM
     Route: 048
  39. RIVOTRIL [Concomitant]
     Active Substance: CLONAZEPAM
     Route: 048
  40. RIVOTRIL [Concomitant]
     Active Substance: CLONAZEPAM
  41. Solaxin [Concomitant]
     Indication: Pain in extremity
  42. Solaxin [Concomitant]
     Route: 048
  43. Solaxin [Concomitant]
     Route: 048
  44. Solaxin [Concomitant]

REACTIONS (1)
  - Acquired cystic kidney disease [Recovering/Resolving]

NARRATIVE: CASE EVENT DATE: 20250316
